FAERS Safety Report 8495901-1 (Version None)
Quarter: 2012Q3

REPORT INFORMATION
  Report Type: 
  Country: None (occurrence: None)
  Receive Date: 20120709
  Receipt Date: 20120703
  Transmission Date: 20120928
  Serious: Yes (Hospitalization)
  Sender: FDA-Public Use
  Company Number: US-GLAXOSMITHKLINE-A0703348A

PATIENT
  Age: 57 Year
  Sex: Male
  Weight: 97.7 kg

DRUGS (3)
  1. UNSPECIFIED MEDICATION [Concomitant]
  2. TOPROL-XL [Concomitant]
  3. AVANDIA [Suspect]
     Indication: TYPE 2 DIABETES MELLITUS
     Dosage: 2MG TWICE PER DAY
     Route: 048
     Dates: start: 20060801, end: 20071201

REACTIONS (1)
  - MYOCARDIAL INFARCTION [None]
